FAERS Safety Report 10153051 (Version 1)
Quarter: 2014Q2

REPORT INFORMATION
  Report Type: Spontaneous
  Country: US (occurrence: US)
  Receive Date: 20140505
  Receipt Date: 20140505
  Transmission Date: 20141212
  Serious: No
  Sender: FDA-Public Use
  Company Number: US-JNJFOC-20140417037

PATIENT
  Sex: Male
  Weight: 89.81 kg

DRUGS (1)
  1. DURAGESIC [Suspect]
     Indication: PRODUCT USED FOR UNKNOWN INDICATION
     Route: 062

REACTIONS (3)
  - Hyperhidrosis [Not Recovered/Not Resolved]
  - Drug dose omission [Unknown]
  - Product adhesion issue [Unknown]
